FAERS Safety Report 5926665-0 (Version None)
Quarter: 2008Q4

REPORT INFORMATION
  Report Type: 
  Country: None (occurrence: None)
  Receive Date: 20081022
  Receipt Date: 20081007
  Transmission Date: 20090506
  Serious: Yes (Other)
  Sender: FDA-Public Use
  Company Number: CH-ROCHE-489575

PATIENT
  Sex: Male
  Weight: 71 kg

DRUGS (11)
  1. PEGASYS [Suspect]
     Dosage: FORM:VIAL
     Route: 058
     Dates: start: 20070202, end: 20070223
  2. SIMCORA [Suspect]
     Route: 048
     Dates: start: 20060313, end: 20070223
  3. DILATREND [Concomitant]
     Indication: ISCHAEMIC CARDIOMYOPATHY
     Route: 048
  4. LISINOPRIL [Concomitant]
     Indication: ESSENTIAL HYPERTENSION
  5. ASPIRIN [Concomitant]
     Dosage: GENERIC REPORTED AS ACETYLSALICYTIC ACID.
     Route: 048
     Dates: start: 20060501
  6. TOREM [Concomitant]
     Indication: ESSENTIAL HYPERTENSION
     Route: 048
     Dates: start: 20060101
  7. CALCIUM CARBONATE [Concomitant]
     Route: 048
     Dates: start: 20060101
  8. CHOLESTYRAMINE [Concomitant]
     Route: 048
     Dates: start: 20070209, end: 20070216
  9. VITAMIN D3 [Concomitant]
     Route: 048
  10. VALCYTE [Concomitant]
     Route: 048
  11. HUMALOG [Concomitant]

REACTIONS (4)
  - BLOOD CREATINE PHOSPHOKINASE INCREASED [None]
  - HAEMATURIA [None]
  - MYOGLOBINURIA [None]
  - RHABDOMYOLYSIS [None]
